FAERS Safety Report 6419631-2 (Version None)
Quarter: 2009Q4

REPORT INFORMATION
  Report Type: 
  Country: None (occurrence: None)
  Receive Date: 20091029
  Receipt Date: 20091026
  Transmission Date: 20100525
  Serious: Yes (Other)
  Sender: FDA-Public Use
  Company Number: A0808473A

PATIENT
  Age: 42 Year
  Sex: Female

DRUGS (2)
  1. LAMICTAL [Suspect]
     Indication: EPILEPSY
     Dosage: 62.5MG TWICE PER DAY
     Route: 048
     Dates: start: 20090917
  2. NO CONCURRENT MEDICATION [Concomitant]

REACTIONS (3)
  - CONVULSION [None]
  - MIGRAINE [None]
  - PRODUCT QUALITY ISSUE [None]
